FAERS Safety Report 7681259-4 (Version None)
Quarter: 2011Q3

REPORT INFORMATION
  Report Type: 
  Country: None (occurrence: None)
  Receive Date: 20110812
  Receipt Date: 20110620
  Transmission Date: 20111222
  Serious: Yes (Hospitalization)
  Sender: FDA-Public Use
  Company Number: PHHO2011JP10788

PATIENT
  Sex: Male
  Weight: 58 kg

DRUGS (24)
  1. BLINDED NO TREATMENT RECEIVED [Suspect]
     Indication: CARDIAC FAILURE
     Dosage: CODE NOT BROKEN
     Route: 048
     Dates: start: 20100302, end: 20110618
  2. ENALAPRIL MALEATE [Suspect]
     Indication: CARDIAC FAILURE CHRONIC
     Dosage: 20 MG, UNK
     Route: 048
     Dates: start: 20100109
  3. ASPIRIN [Suspect]
     Indication: CARDIAC FAILURE CHRONIC
  4. WARFARIN SODIUM [Suspect]
     Indication: ATRIAL FIBRILLATION
     Dosage: 3.5 MG, UNK
     Route: 048
     Dates: start: 20100301, end: 20110618
  5. ATELEC [Suspect]
     Indication: HYPERTENSION
     Dosage: 20 MG, UNK
     Route: 048
     Dates: start: 20110623, end: 20110729
  6. ALISKIREN [Suspect]
     Indication: CARDIAC FAILURE CHRONIC
     Dosage: 300 MG, UNK
     Route: 048
     Dates: start: 20100201
  7. EPLERENONE [Concomitant]
     Indication: CARDIAC FAILURE CHRONIC
     Dosage: 50 MG, UNK
     Route: 048
     Dates: start: 20100713, end: 20110618
  8. TETRAMIDE [Concomitant]
     Indication: DEPRESSION
     Dosage: 10 MG, UNK
     Route: 048
     Dates: start: 20110728, end: 20110729
  9. SIGMART [Concomitant]
     Indication: MYOCARDIAL INFARCTION
     Dosage: 10 MG, UNK
     Route: 048
     Dates: start: 20090220, end: 20110618
  10. BLINDED ALISKIREN [Suspect]
     Indication: CARDIAC FAILURE
     Dosage: CODE NOT BROKEN
     Route: 048
     Dates: start: 20100302, end: 20110618
  11. ASPIRIN [Suspect]
     Indication: MYOCARDIAL INFARCTION
     Dosage: 100 MG, UNK
     Route: 048
     Dates: start: 20090220, end: 20110618
  12. RABEPRAZOLE SODIUM [Suspect]
     Indication: PROPHYLAXIS
     Dosage: 10 MG, UNK
     Route: 048
     Dates: start: 20091023, end: 20110618
  13. RABEPRAZOLE SODIUM [Suspect]
     Dosage: 10 MG, UNK
     Route: 048
     Dates: start: 20110622, end: 20110729
  14. PRIMPERAN TAB [Suspect]
     Indication: NAUSEA
     Dosage: 2 ML, UNK
     Route: 042
     Dates: start: 20110618, end: 20110728
  15. AMINO ACIDS/CARBOHYDRATES/MINERALS/VITAMINS, [Concomitant]
     Indication: NUTRITIONAL SUPPORT
     Dosage: 1000 ML, UNK
     Route: 042
     Dates: start: 20110717, end: 20110728
  16. DIGOXIN [Concomitant]
     Indication: CARDIAC FAILURE CHRONIC
     Dosage: 0.125 MG, UNK
     Route: 048
     Dates: start: 20091118, end: 20110618
  17. ANTIDEPRESSANTS [Suspect]
  18. ENALAPRIL MALEATE [Suspect]
     Indication: CARDIAC FAILURE
     Dosage: CODE NOT BROKEN
     Route: 048
     Dates: start: 20100302, end: 20110618
  19. ALLOID [Suspect]
     Indication: GASTRITIS PROPHYLAXIS
     Dosage: 60 ML, UNK
     Route: 048
     Dates: start: 20110726, end: 20110729
  20. ALLOPURINOL [Concomitant]
     Indication: HYPERURICAEMIA
     Dosage: 100 MG, UNK
     Route: 048
     Dates: start: 20090220, end: 20110618
  21. CARVEDILOL [Concomitant]
     Indication: CARDIAC FAILURE CHRONIC
     Dosage: 2.5 MG, UNK
     Route: 048
     Dates: start: 20110524, end: 20110618
  22. TENORMIN [Suspect]
     Indication: HYPERTENSION
     Dosage: 12.5 MG, UNK
     Route: 048
     Dates: start: 20110712, end: 20110729
  23. LASIX [Concomitant]
     Indication: CARDIAC FAILURE CHRONIC
     Dosage: 20 MG, UNK
     Route: 048
     Dates: start: 20100713, end: 20110718
  24. CEFTRIAXONE SODIUM [Concomitant]
     Indication: SEPSIS
     Dosage: 1 G, UNK
     Route: 042
     Dates: start: 20110728

REACTIONS (2)
  - HEPATIC FUNCTION ABNORMAL [None]
  - CEREBELLAR HAEMORRHAGE [None]
